FAERS Safety Report 20351840 (Version 14)
Quarter: 2024Q4

REPORT INFORMATION
  Report Type: Spontaneous
  Country: JP (occurrence: JP)
  Receive Date: 20220119
  Receipt Date: 20241028
  Transmission Date: 20250115
  Serious: Yes (Death, Life-Threatening, Hospitalization, Other)
  Sender: BRISTOL-MYERS SQUIBB COMPANY
  Company Number: JP-BRISTOL-MYERS SQUIBB COMPANY-BMS-2021-085634

PATIENT
  Age: 53 Year
  Sex: Male
  Weight: 50.1 kg

DRUGS (20)
  1. OPDIVO [Suspect]
     Active Substance: NIVOLUMAB
     Indication: Malignant melanoma
     Dosage: 240 MG, Q2W
     Route: 041
     Dates: start: 20210426
  2. OPDIVO [Suspect]
     Active Substance: NIVOLUMAB
     Dosage: 240 MG, Q2W
     Route: 041
     Dates: start: 20210510
  3. OPDIVO [Suspect]
     Active Substance: NIVOLUMAB
     Dosage: 240 MG, Q2W
     Route: 041
     Dates: start: 20210524
  4. OPDIVO [Suspect]
     Active Substance: NIVOLUMAB
     Dosage: 240 MG, Q2W
     Route: 041
     Dates: start: 20210607
  5. OPDIVO [Suspect]
     Active Substance: NIVOLUMAB
     Dosage: 240 MG, Q2W
     Route: 041
     Dates: start: 20210521
  6. OPDIVO [Suspect]
     Active Substance: NIVOLUMAB
     Dosage: 240 MG, Q2W
     Route: 041
     Dates: start: 20210705
  7. OPDIVO [Suspect]
     Active Substance: NIVOLUMAB
     Dosage: 240 MG, Q2W
     Route: 041
     Dates: start: 20210719
  8. OPDIVO [Suspect]
     Active Substance: NIVOLUMAB
     Dosage: 240 MG, Q2W
     Route: 041
     Dates: start: 20210802
  9. OPDIVO [Suspect]
     Active Substance: NIVOLUMAB
     Dosage: 240 MG, Q2W
     Route: 041
     Dates: start: 20210816, end: 20210816
  10. PREDONINE [Suspect]
     Active Substance: PREDNISOLONE
     Indication: Immune-mediated gastritis
     Route: 042
     Dates: start: 20210826
  11. PREDONINE [Suspect]
     Active Substance: PREDNISOLONE
     Indication: Immune-mediated pancreatitis
     Dosage: MG/KG
     Route: 042
     Dates: start: 20210826
  12. PREDONINE [Suspect]
     Active Substance: PREDNISOLONE
     Dosage: 1.5 MG/KG
     Route: 042
     Dates: start: 20210826
  13. PREDONINE [Suspect]
     Active Substance: PREDNISOLONE
  14. METHYLPREDNISOLONE [Suspect]
     Active Substance: METHYLPREDNISOLONE
     Indication: Immune-mediated gastritis
     Dates: start: 20211025, end: 20211027
  15. METHYLPREDNISOLONE [Suspect]
     Active Substance: METHYLPREDNISOLONE
     Indication: Immune-mediated pancreatitis
     Dates: start: 20210922, end: 20210924
  16. OLOPATADINE HYDROCHLORIDE [Concomitant]
     Active Substance: OLOPATADINE HYDROCHLORIDE
     Indication: Product used for unknown indication
     Dosage: ORAL DRUG UNSPECIFIED FORM
     Route: 048
  17. CARBOCYSTEINE [Concomitant]
     Active Substance: CARBOCYSTEINE
     Indication: Product used for unknown indication
     Dosage: ORAL DRUG UNSPECIFIED FORM
     Route: 048
  18. RAMATROBAN [Concomitant]
     Active Substance: RAMATROBAN
     Indication: Product used for unknown indication
     Dosage: ORAL DRUG UNSPECIFIED FORM
     Route: 048
  19. MOMETASONE [Concomitant]
     Active Substance: MOMETASONE
     Indication: Product used for unknown indication
     Dosage: UNK
     Route: 045
  20. HEPARIN SODIUM [Concomitant]
     Active Substance: HEPARIN SODIUM
     Indication: Product used for unknown indication
     Dosage: UNK
     Dates: end: 20210929

REACTIONS (9)
  - Gastric ulcer [Not Recovered/Not Resolved]
  - Immune-mediated gastritis [Not Recovered/Not Resolved]
  - Immune-mediated pancreatitis [Not Recovered/Not Resolved]
  - Immune-mediated cholangitis [Fatal]
  - Duodenal stenosis [Not Recovered/Not Resolved]
  - Cytomegalovirus gastritis [Not Recovered/Not Resolved]
  - Multiple organ dysfunction syndrome [Fatal]
  - Oesophageal candidiasis [Unknown]
  - Steroid diabetes [Unknown]

NARRATIVE: CASE EVENT DATE: 20210814
